FAERS Safety Report 23512348 (Version 1)
Quarter: 2024Q1

REPORT INFORMATION
  Report Type: Spontaneous
  Country: DE (occurrence: None)
  Receive Date: 20240212
  Receipt Date: 20240212
  Transmission Date: 20240410
  Serious: Yes (Other)
  Sender: FDA-Public Use
  Company Number: 2024A035036

PATIENT
  Age: 3 Month
  Sex: Female

DRUGS (1)
  1. BEYFORTUS [Suspect]
     Active Substance: NIRSEVIMAB-ALIP
     Dosage: UNK
     Dates: start: 20231121, end: 20231121

REACTIONS (1)
  - Immune thrombocytopenia [Unknown]

NARRATIVE: CASE EVENT DATE: 20240116
